FAERS Safety Report 15265010 (Version 2)
Quarter: 2018Q4

REPORT INFORMATION
  Report Type: Spontaneous
  Country: US (occurrence: US)
  Receive Date: 20180810
  Receipt Date: 20181024
  Transmission Date: 20190204
  Serious: No
  Sender: FDA-Public Use
  Company Number: US-MYLANLABS-2018M1059182

PATIENT
  Age: 82 Year
  Sex: Female
  Weight: 102 kg

DRUGS (1)
  1. ESTRADIOL VAGINAL CREAM USP [Suspect]
     Active Substance: ESTRADIOL
     Indication: VULVOVAGINAL PRURITUS
     Dosage: 0.05 MG, BID AS NEEDED
     Route: 067

REACTIONS (5)
  - Generalised erythema [Not Recovered/Not Resolved]
  - Product dispensing error [Unknown]
  - Accidental overdose [None]
  - Rash generalised [Not Recovered/Not Resolved]
  - Pruritus generalised [Not Recovered/Not Resolved]

NARRATIVE: CASE EVENT DATE: 20180725
